FAERS Safety Report 10748148 (Version 3)
Quarter: 2015Q2

REPORT INFORMATION
  Report Type: Spontaneous
  Country: US (occurrence: US)
  Receive Date: 20150129
  Receipt Date: 20150513
  Transmission Date: 20150821
  Serious: Yes (Other)
  Sender: FDA-Public Use
  Company Number: US-009507513-1501USA005854

PATIENT
  Age: 17 Year
  Sex: Female
  Weight: 91.61 kg

DRUGS (2)
  1. WELLBUTRIN [Concomitant]
     Active Substance: BUPROPION HYDROCHLORIDE
  2. NEXPLANON [Suspect]
     Active Substance: ETONOGESTREL
     Indication: CONTRACEPTION
     Dosage: 1 ROD, ONCE
     Route: 059
     Dates: start: 201101, end: 20150216

REACTIONS (6)
  - Device deployment issue [Recovered/Resolved]
  - Weight increased [Unknown]
  - Muscle spasms [Unknown]
  - Surgery [Unknown]
  - Incorrect drug administration duration [Unknown]
  - Medical device complication [Recovered/Resolved]

NARRATIVE: CASE EVENT DATE: 201101
